FAERS Safety Report 4404221-3 (Version None)
Quarter: 2004Q3

REPORT INFORMATION
  Report Type: 
  Country: None (occurrence: None)
  Receive Date: 20040719
  Receipt Date: 20040624
  Transmission Date: 20050211
  Serious: No
  Sender: FDA-Public Use
  Company Number: 2004-117869-NL

PATIENT
  Sex: Male

DRUGS (1)
  1. ROCURONIUM BROMIDE [Suspect]

REACTIONS (1)
  - ANAPHYLACTIC REACTION [None]
